FAERS Safety Report 8246023-6 (Version None)
Quarter: 2012Q1

REPORT INFORMATION
  Report Type: 
  Country: None (occurrence: None)
  Receive Date: 20120330
  Receipt Date: 20120319
  Transmission Date: 20120608
  Serious: Yes (Hospitalization)
  Sender: FDA-Public Use
  Company Number: JP-JNJFOC-20120311813

PATIENT
  Sex: Male
  Weight: 60 kg

DRUGS (15)
  1. REMICADE [Suspect]
     Route: 042
     Dates: start: 20111212
  2. REMICADE [Suspect]
     Route: 042
     Dates: start: 20110621
  3. ZOLPIDEM [Concomitant]
     Indication: COLITIS ULCERATIVE
     Route: 048
  4. REMICADE [Suspect]
     Route: 042
     Dates: start: 20110822
  5. MERCAPTOPURINE [Suspect]
     Indication: COLITIS ULCERATIVE
     Route: 048
  6. PENTASA [Concomitant]
     Indication: COLITIS ULCERATIVE
     Route: 048
  7. FAMOTIDINE [Concomitant]
     Indication: COLITIS ULCERATIVE
     Route: 048
  8. WARFARIN SODIUM [Concomitant]
     Indication: INTRACRANIAL VENOUS SINUS THROMBOSIS
     Route: 048
  9. TEGRETOL [Concomitant]
     Indication: INTRACRANIAL VENOUS SINUS THROMBOSIS
     Route: 048
     Dates: start: 20110509
  10. REMICADE [Suspect]
     Route: 042
     Dates: start: 20110704
  11. PREDNISOLONE [Suspect]
     Indication: COLITIS ULCERATIVE
     Route: 048
  12. MIYA BM [Concomitant]
     Indication: COLITIS ULCERATIVE
     Route: 048
  13. REMICADE [Suspect]
     Indication: COLITIS ULCERATIVE
     Route: 042
     Dates: start: 20120206
  14. REMICADE [Suspect]
     Route: 042
     Dates: start: 20111017
  15. ACTONEL [Concomitant]
     Indication: PROPHYLAXIS
     Route: 048

REACTIONS (4)
  - HERPES ZOSTER [None]
  - ANAL ABSCESS [None]
  - DEVICE RELATED INFECTION [None]
  - ORAL CANDIDIASIS [None]
